FAERS Safety Report 5619425-1 (Version None)
Quarter: 2008Q1

REPORT INFORMATION
  Report Type: 
  Country: None (occurrence: None)
  Receive Date: 20080109
  Receipt Date: 20070124
  Transmission Date: 20080703
  Serious: Yes (Life-Threatening, Hospitalization, Other)
  Sender: FDA-Public Use
  Company Number: WAES 0701USA04390

PATIENT
  Age: 59 Year
  Sex: Female
  Weight: 75.7507 kg

DRUGS (4)
  1. ZETIA [Suspect]
     Indication: HYPERLIPIDAEMIA
     Dosage: 10 MG, DIALY, PO
     Route: 048
     Dates: start: 20060320, end: 20070112
  2. ADVAIR HFA [Concomitant]
  3. PRINIVIL [Concomitant]
  4. ALBUTEROL [Concomitant]

REACTIONS (3)
  - ALANINE AMINOTRANSFERASE INCREASED [None]
  - ASPARTATE AMINOTRANSFERASE INCREASED [None]
  - RHABDOMYOLYSIS [None]
